FAERS Safety Report 4414370-1 (Version None)
Quarter: 2004Q2

REPORT INFORMATION
  Report Type: 
  Country: None (occurrence: None)
  Receive Date: 20040630
  Receipt Date: 20040301
  Transmission Date: 20050107
  Serious: No
  Sender: FDA-Public Use
  Company Number: 04P-163-0251836-00

PATIENT
  Age: 56 Year
  Sex: Female

DRUGS (5)
  1. HUMIRA [Suspect]
     Indication: RHEUMATOID ARTHRITIS
     Dosage: 40 MG, 1 IN 1 WK, SUBCUTANEOUS
     Route: 058
     Dates: start: 20030901
  2. PHENYTOIN SODIUM [Concomitant]
  3. PRIMADONE [Concomitant]
  4. ATENOLOL [Concomitant]
  5. ZOLMITRIPTAN [Concomitant]

REACTIONS (1)
  - MIGRAINE [None]
